FAERS Safety Report 11324994 (Version 3)
Quarter: 2015Q3

REPORT INFORMATION
  Report Type: Report from Study
  Country: US (occurrence: US)
  Receive Date: 20150730
  Receipt Date: 20150921
  Transmission Date: 20151125
  Serious: Yes (Death)
  Sender: FDA-Public Use
  Company Number: US-CELGENE-USA-2015075199

PATIENT
  Age: 32 Year
  Sex: Male
  Weight: 71.28 kg

DRUGS (1)
  1. CC-10004 [Suspect]
     Active Substance: APREMILAST
     Indication: PSORIASIS
     Dosage: 60 MILLIGRAM
     Route: 048
     Dates: start: 20110818

REACTIONS (1)
  - Death [Fatal]

NARRATIVE: CASE EVENT DATE: 20150720
